FAERS Safety Report 10768490 (Version 2)
Quarter: 2015Q2

REPORT INFORMATION
  Report Type: Spontaneous
  Country: CA (occurrence: CA)
  Receive Date: 20150206
  Receipt Date: 20150623
  Transmission Date: 20150821
  Serious: Yes (Other)
  Sender: FDA-Public Use
  Company Number: CA-AMGEN-CANSP2014100252

PATIENT
  Age: 47 Year
  Sex: Female

DRUGS (10)
  1. PREDNISONE. [Concomitant]
     Active Substance: PREDNISONE
     Indication: RHEUMATOID ARTHRITIS
     Dosage: UNK
  2. METHOTREXATE [Suspect]
     Active Substance: METHOTREXATE
     Dosage: UNK
     Route: 065
     Dates: start: 20111024, end: 20120528
  3. METHOTREXATE [Suspect]
     Active Substance: METHOTREXATE
     Indication: RHEUMATOID ARTHRITIS
     Dosage: 15-20-25 MG
     Route: 065
     Dates: start: 1989
  4. PREDNISONE. [Concomitant]
     Active Substance: PREDNISONE
     Indication: SARCOIDOSIS
  5. ARTHROTEC [Concomitant]
     Active Substance: DICLOFENAC SODIUM\MISOPROSTOL
     Dosage: 75 MG, BID
  6. ENBREL [Suspect]
     Active Substance: ETANERCEPT
     Indication: RHEUMATOID ARTHRITIS
     Dosage: 50 MG, QWK
     Route: 058
     Dates: start: 201007
  7. HYDROXYCHLOROQUINE [Concomitant]
     Active Substance: HYDROXYCHLOROQUINE
     Dosage: 400- 300 MG DIE
     Dates: start: 2002
  8. XELJANZ [Suspect]
     Active Substance: TOFACITINIB CITRATE
     Indication: PRODUCT USED FOR UNKNOWN INDICATION
     Dosage: UNK
     Route: 065
     Dates: start: 20150113
  9. METHOTREXATE [Suspect]
     Active Substance: METHOTREXATE
     Dosage: UNK
     Route: 065
     Dates: start: 1999, end: 2009
  10. HUMIRA [Suspect]
     Active Substance: ADALIMUMAB
     Indication: RHEUMATOID ARTHRITIS
     Dosage: 40 MG, UNK
     Route: 058
     Dates: start: 20100819, end: 20130412

REACTIONS (18)
  - Uveitis [Unknown]
  - Alopecia [Unknown]
  - Drug intolerance [Unknown]
  - Swelling face [Recovered/Resolved]
  - Migraine [Unknown]
  - Hypoaesthesia [Recovered/Resolved]
  - Pharyngeal oedema [Recovered/Resolved]
  - Asthenia [Unknown]
  - Synovitis [Unknown]
  - Diarrhoea [Unknown]
  - Rheumatoid factor positive [Unknown]
  - Anaemia [Recovered/Resolved]
  - Dyspepsia [Unknown]
  - Nausea [Unknown]
  - Anti-cyclic citrullinated peptide antibody positive [Unknown]
  - Dyspnoea [Recovered/Resolved]
  - Angioedema [Unknown]
  - Bone erosion [Unknown]

NARRATIVE: CASE EVENT DATE: 2012
